FAERS Safety Report 8177280-2 (Version None)
Quarter: 2012Q1

REPORT INFORMATION
  Report Type: 
  Country: None (occurrence: None)
  Receive Date: 20120301
  Receipt Date: 20120227
  Transmission Date: 20120608
  Serious: Yes (Other)
  Sender: FDA-Public Use
  Company Number: US-ROCHE-1043921

PATIENT
  Sex: Male

DRUGS (2)
  1. RIBAVIRIN [Suspect]
     Indication: HEPATITIS C
     Dates: start: 20120127
  2. PEGASYS [Suspect]
     Indication: HEPATITIS C
     Dates: start: 20120127

REACTIONS (4)
  - BLOOD URINE [None]
  - MUSCLE SPASMS [None]
  - NAUSEA [None]
  - FATIGUE [None]
